FAERS Safety Report 8592051-0 (Version None)
Quarter: 2012Q3

REPORT INFORMATION
  Report Type: 
  Country: None (occurrence: None)
  Receive Date: 20120814
  Receipt Date: 20120806
  Transmission Date: 20120928
  Serious: Yes (Other)
  Sender: FDA-Public Use
  Company Number: FR-ASTELLAS-2012EU005728

PATIENT
  Sex: Female
  Weight: 62 kg

DRUGS (1)
  1. SOLIFENACIN SUCCINATE [Suspect]
     Indication: BLADDER DISORDER
     Dosage: 5 MG, UID/QD
     Route: 048

REACTIONS (1)
  - SURGERY [None]
